FAERS Safety Report 8221030-8 (Version None)
Quarter: 2012Q1

REPORT INFORMATION
  Report Type: 
  Country: None (occurrence: None)
  Receive Date: 20120320
  Receipt Date: 20120315
  Transmission Date: 20120608
  Serious: Yes (Other)
  Sender: FDA-Public Use
  Company Number: US-PFIZER INC-2012069553

PATIENT
  Sex: Male
  Weight: 86.168 kg

DRUGS (8)
  1. LASIX [Concomitant]
     Indication: DIURETIC THERAPY
     Dosage: 2 DF, DAILY
     Route: 048
  2. LIPITOR [Suspect]
     Dosage: UNK, DAILY
  3. LIPITOR [Suspect]
     Indication: ARTERIAL OCCLUSIVE DISEASE
     Dosage: 10 MG, DAILY
  4. METOPROLOL [Concomitant]
     Indication: HYPERTENSION
     Dosage: UNK,2X/DAY
  5. LISINOPRIL [Concomitant]
     Dosage: 5 MG, DAILY
  6. LIPITOR [Suspect]
     Dosage: 20 MG, DAILY
  7. ACETYLSALICYLIC ACID [Concomitant]
     Dosage: 162 MG, DAILY
     Route: 048
  8. COUMADIN [Concomitant]
     Dosage: 15 MG, 2X/DAY

REACTIONS (1)
  - LUNG NEOPLASM MALIGNANT [None]
